FAERS Safety Report 4985617-8 (Version None)
Quarter: 2006Q2

REPORT INFORMATION
  Report Type: 
  Country: None (occurrence: None)
  Receive Date: 20060428
  Receipt Date: 20060214
  Transmission Date: 20061013
  Serious: Yes (Death, Hospitalization)
  Sender: FDA-Public Use
  Company Number: FR-BRISTOL-MYERS SQUIBB COMPANY-13283825

PATIENT
  Age: 56 Year
  Sex: Male
  Weight: 75 kg

DRUGS (10)
  1. CISPLATIN [Suspect]
     Indication: SMALL CELL LUNG CANCER STAGE UNSPECIFIED
     Route: 042
     Dates: start: 20051209, end: 20051209
  2. IRINOTECAN HCL [Suspect]
     Indication: SMALL CELL LUNG CANCER STAGE UNSPECIFIED
     Route: 042
     Dates: start: 20051209, end: 20051209
  3. PRIMPERAN TAB [Concomitant]
     Indication: NAUSEA
     Route: 042
     Dates: start: 20051211, end: 20051211
  4. LEXOMIL [Concomitant]
     Indication: ANXIETY
     Route: 048
     Dates: start: 20051101
  5. DURAGESIC-100 [Concomitant]
     Indication: PAIN
     Route: 062
     Dates: start: 20051101
  6. SOLU-MEDROL [Concomitant]
     Indication: NAUSEA
     Route: 042
     Dates: start: 20051209
  7. LASILIX [Concomitant]
     Indication: DIURETIC EFFECT
     Route: 042
     Dates: start: 20051209
  8. VOGALENE [Concomitant]
     Indication: NAUSEA
     Route: 048
     Dates: start: 20051212, end: 20051219
  9. ATROPINE [Concomitant]
     Indication: DIARRHOEA
     Route: 042
     Dates: start: 20051210, end: 20051210
  10. LOPERAMIDE [Concomitant]
     Indication: DIARRHOEA
     Route: 048
     Dates: start: 20051210, end: 20051210

REACTIONS (3)
  - ACUTE RESPIRATORY FAILURE [None]
  - NEUTROPENIA [None]
  - THROMBOCYTOPENIA [None]
